FAERS Safety Report 21364701 (Version 1)
Quarter: 2022Q3

REPORT INFORMATION
  Report Type: Spontaneous
  Country: US (occurrence: None)
  Receive Date: 20220922
  Receipt Date: 20220922
  Transmission Date: 20221027
  Serious: No
  Sender: FDA-Public Use
  Company Number: None

PATIENT
  Age: 74 Year
  Sex: Female
  Weight: 105.75 kg

DRUGS (1)
  1. PRAVASTATIN [Suspect]
     Active Substance: PRAVASTATIN
     Indication: Blood cholesterol
     Dosage: OTHER QUANTITY : 1 TABLET(S);?FREQUENCY : DAILY;?
     Route: 048
     Dates: start: 20160201, end: 20220817

REACTIONS (9)
  - Muscular weakness [None]
  - Joint stiffness [None]
  - Vision blurred [None]
  - Muscle spasms [None]
  - Restless legs syndrome [None]
  - Dyspnoea [None]
  - Atrial fibrillation [None]
  - Chest discomfort [None]
  - COVID-19 [None]

NARRATIVE: CASE EVENT DATE: 20220817
